FAERS Safety Report 18739047 (Version 1)
Quarter: 2021Q1

REPORT INFORMATION
  Report Type: Spontaneous
  Country: US (occurrence: US)
  Receive Date: 20210113
  Receipt Date: 20210113
  Transmission Date: 20210419
  Serious: No
  Sender: FDA-Public Use
  Company Number: None

PATIENT
  Age: 65 Year
  Sex: Male
  Weight: 187 kg

DRUGS (1)
  1. METOLAZONE (METOLAZONE 5MG TAB) [Suspect]
     Active Substance: METOLAZONE
     Dosage: ?          OTHER FREQUENCY:OTHER;?
     Route: 048

REACTIONS (3)
  - Pruritus [None]
  - Hypoglycaemia [None]
  - Urticaria [None]

NARRATIVE: CASE EVENT DATE: 20201102
